FAERS Safety Report 23465476 (Version 2)
Quarter: 2024Q1

REPORT INFORMATION
  Report Type: Report from Study
  Country: FR (occurrence: FR)
  Receive Date: 20240201
  Receipt Date: 20240212
  Transmission Date: 20240409
  Serious: No
  Sender: FDA-Public Use
  Company Number: FR-TAKEDA-2024TUS008124

PATIENT
  Age: 60 Year
  Sex: Male

DRUGS (7)
  1. TEDUGLUTIDE [Suspect]
     Active Substance: TEDUGLUTIDE
     Indication: Short-bowel syndrome
     Dosage: 3.16 MILLIGRAM, QD
     Route: 042
     Dates: start: 20181023
  2. TEDUGLUTIDE [Suspect]
     Active Substance: TEDUGLUTIDE
     Indication: Short-bowel syndrome
     Dosage: 3.16 MILLIGRAM, QD
     Route: 042
     Dates: start: 20181023
  3. TEDUGLUTIDE [Suspect]
     Active Substance: TEDUGLUTIDE
     Indication: Short-bowel syndrome
     Dosage: 3.16 MILLIGRAM, QD
     Route: 042
     Dates: start: 20181023
  4. TEDUGLUTIDE [Suspect]
     Active Substance: TEDUGLUTIDE
     Indication: Short-bowel syndrome
     Dosage: 3.16 MILLIGRAM, QD
     Route: 042
     Dates: start: 20181023
  5. PERINDOPRIL [Concomitant]
     Active Substance: PERINDOPRIL
     Indication: Hypertension
     Dosage: 4 MILLIGRAM, QD
     Route: 048
     Dates: start: 20231214
  6. Fucidine [Concomitant]
     Indication: Catheter site inflammation
     Dosage: UNK
     Route: 062
     Dates: start: 202207, end: 202208
  7. DAPTOMYCIN [Concomitant]
     Active Substance: DAPTOMYCIN
     Indication: Vascular device infection
     Dosage: 500 MILLIGRAM, QD
     Route: 048
     Dates: start: 20220114, end: 20220210

REACTIONS (2)
  - Gastrointestinal stoma complication [Not Recovered/Not Resolved]
  - Eczema [Not Recovered/Not Resolved]

NARRATIVE: CASE EVENT DATE: 20231201
